FAERS Safety Report 19985023 (Version 1)
Quarter: 2021Q4

REPORT INFORMATION
  Report Type: Spontaneous
  Country: US (occurrence: US)
  Receive Date: 20211020
  Receipt Date: 20211020
  Transmission Date: 20220304
  Serious: No
  Sender: FDA-Public Use
  Company Number: None

PATIENT
  Age: 6 Year
  Sex: Female
  Weight: 23 kg

DRUGS (6)
  1. SAPROPTERIN DIHYDROCHLORIDE [Suspect]
     Active Substance: SAPROPTERIN DIHYDROCHLORIDE
     Indication: Phenylketonuria
     Dosage: ?          QUANTITY:10 ML MILLILITRE(S);
     Dates: start: 202103, end: 202104
  2. PURELAX [Concomitant]
     Active Substance: POLYETHYLENE GLYCOL 3350
  3. SENNA [Concomitant]
     Active Substance: SENNA LEAF\SENNOSIDES\SENNOSIDES A AND B
  4. MINERAL OIL [Concomitant]
     Active Substance: MINERAL OIL
  5. FLEET ENEMA [Concomitant]
     Active Substance: SODIUM PHOSPHATE, DIBASIC\SODIUM PHOSPHATE, MONOBASIC
  6. PKU PERIFLEX JUNIOR PLUS [Concomitant]

REACTIONS (4)
  - Abnormal behaviour [None]
  - Aggression [None]
  - Depressed level of consciousness [None]
  - Confusional state [None]

NARRATIVE: CASE EVENT DATE: 20210301
